FAERS Safety Report 9528704 (Version 2)
Quarter: 2013Q3

REPORT INFORMATION
  Report Type: Report from Study
  Country: ES (occurrence: ES)
  Receive Date: 20130917
  Receipt Date: 20130917
  Transmission Date: 20140515
  Serious: Yes (Hospitalization)
  Sender: FDA-Public Use
  Company Number: ES-ASTRAZENECA-2012SE70768

PATIENT
  Age: 25548 Day
  Sex: Male

DRUGS (9)
  1. AZD6140 [Suspect]
     Indication: CORONARY ARTERY DISEASE
     Route: 048
     Dates: start: 20120104, end: 20120903
  2. ATORVASTATIN [Concomitant]
     Indication: ISCHAEMIC HEART DISEASE PROPHYLAXIS
     Route: 048
  3. ATORVASTATIN [Concomitant]
     Indication: DYSLIPIDAEMIA
     Route: 048
  4. ATENOLOL [Concomitant]
     Indication: HYPERTENSION
     Route: 048
  5. OMEPRAZOL [Concomitant]
     Indication: GASTRITIS PROPHYLAXIS
     Route: 048
     Dates: end: 20120830
  6. OMEPRAZOL [Concomitant]
     Indication: GASTRITIS PROPHYLAXIS
     Route: 048
     Dates: start: 20120904
  7. CAFINITRINA [Concomitant]
     Indication: ACUTE MYOCARDIAL INFARCTION
     Dosage: IF NEEDED
     Route: 048
  8. ENALAPRIL [Concomitant]
     Indication: HYPERTENSION
     Route: 048
  9. ASA [Concomitant]
     Route: 048

REACTIONS (1)
  - Emphysema [Recovered/Resolved]
